FAERS Safety Report 24681919 (Version 3)
Quarter: 2024Q4

REPORT INFORMATION
  Report Type: Spontaneous
  Country: FR (occurrence: FR)
  Receive Date: 20241130
  Receipt Date: 20241220
  Transmission Date: 20250115
  Serious: Yes (Death, Hospitalization, Other)
  Sender: AUROBINDO
  Company Number: FR-AUROBINDO-AUR-APL-2024-057722

PATIENT
  Age: 32 Year
  Sex: Male

DRUGS (6)
  1. AZACITIDINE [Suspect]
     Active Substance: AZACITIDINE
     Indication: Myelodysplastic syndrome
     Dosage: UNK
     Route: 065
  2. AZACITIDINE [Suspect]
     Active Substance: AZACITIDINE
     Indication: Polyarteritis nodosa
  3. PREDNISONE [Suspect]
     Active Substance: PREDNISONE
     Indication: Myelodysplastic syndrome
     Dosage: 5 MILLIGRAM (GRADUAL REDUCTION)
     Route: 065
  4. PREDNISONE [Suspect]
     Active Substance: PREDNISONE
     Indication: Polyarteritis nodosa
  5. HYDROXYUREA [Suspect]
     Active Substance: HYDROXYUREA
     Indication: Sickle cell disease
     Dosage: UNK
     Route: 065
  6. PREDNISONE [Concomitant]
     Active Substance: PREDNISONE
     Indication: Myelodysplastic syndrome

REACTIONS (13)
  - Myelodysplastic syndrome [Fatal]
  - Disease recurrence [Fatal]
  - Drug ineffective [Fatal]
  - Polyarteritis nodosa [Recovering/Resolving]
  - Acute chest syndrome [Unknown]
  - Shock haemorrhagic [Unknown]
  - Retroperitoneal haematoma [Unknown]
  - Renal aneurysm [Unknown]
  - Aneurysm ruptured [Unknown]
  - Sickle cell anaemia with crisis [Unknown]
  - Graft versus host disease [Unknown]
  - Condition aggravated [Unknown]
  - Product use in unapproved indication [Unknown]
